FAERS Safety Report 5924482-9 (Version None)
Quarter: 2008Q4

REPORT INFORMATION
  Report Type: 
  Country: None (occurrence: None)
  Receive Date: 20081020
  Receipt Date: 20081015
  Transmission Date: 20090506
  Serious: Yes (Hospitalization)
  Sender: FDA-Public Use
  Company Number: US-B.I. PHARMACEUTICALS,INC./RIDGEFIELD-2008-BP-15882BP

PATIENT
  Sex: Female

DRUGS (2)
  1. SPIRIVA [Suspect]
     Indication: CHRONIC OBSTRUCTIVE PULMONARY DISEASE
     Route: 055
     Dates: start: 20071001, end: 20080101
  2. SPIRIVA [Suspect]
     Dosage: 18MCG
     Route: 055
     Dates: start: 20080101, end: 20080401

REACTIONS (11)
  - ABSCESS [None]
  - ABSCESS NECK [None]
  - FLUID RETENTION [None]
  - INTENTIONAL DRUG MISUSE [None]
  - MYOSITIS [None]
  - OEDEMA PERIPHERAL [None]
  - PAIN OF SKIN [None]
  - PRURITUS [None]
  - SKIN BURNING SENSATION [None]
  - SKIN SWELLING [None]
  - THROMBOSIS [None]
